FAERS Safety Report 9559784 (Version 1)
Quarter: 2013Q3

REPORT INFORMATION
  Report Type: Spontaneous
  Country: CN (occurrence: CN)
  Receive Date: 20130927
  Receipt Date: 20130927
  Transmission Date: 20140515
  Serious: Yes (Hospitalization)
  Sender: FDA-Public Use
  Company Number: CN-PFIZER INC-2013277021

PATIENT
  Age: 14 Year
  Sex: Female

DRUGS (3)
  1. ADRIAMYCIN [Suspect]
     Indication: BONE SARCOMA
     Dosage: UNK
     Dates: start: 20120210, end: 20120228
  2. HOLOXAN [Suspect]
     Indication: BONE SARCOMA
     Dosage: 4 G, 1X/DAY
     Route: 041
     Dates: start: 20120210, end: 20120228
  3. CISPLATIN [Concomitant]
     Indication: BONE SARCOMA
     Dosage: UNK
     Dates: start: 20120210, end: 20120228

REACTIONS (2)
  - Bone marrow failure [Recovering/Resolving]
  - Hepatocellular injury [Recovering/Resolving]
